FAERS Safety Report 6833405-X (Version None)
Quarter: 2010Q3

REPORT INFORMATION
  Report Type: 
  Country: None (occurrence: None)
  Receive Date: 20100712
  Receipt Date: 20070322
  Transmission Date: 20110219
  Serious: No
  Sender: FDA-Public Use
  Company Number: US-PFIZER INC-2007025155

PATIENT
  Age: 55 Year
  Sex: Female
  Weight: 86.64 kg

DRUGS (4)
  1. CHANTIX [Suspect]
     Indication: SMOKING CESSATION THERAPY
     Dates: start: 20070101
  2. LIPITOR [Concomitant]
  3. IBUPROFEN [Concomitant]
  4. DARVOCET [Concomitant]

REACTIONS (2)
  - ANXIETY [None]
  - NAUSEA [None]
